FAERS Safety Report 7780372-0 (Version None)
Quarter: 2011Q3

REPORT INFORMATION
  Report Type: 
  Country: None (occurrence: None)
  Receive Date: 20110922
  Receipt Date: 20110913
  Transmission Date: 20111222
  Serious: Yes (Other)
  Sender: FDA-Public Use
  Company Number: LEO-2011-00750

PATIENT
  Age: 54 Year
  Sex: Male

DRUGS (4)
  1. INNOHEP [Suspect]
     Indication: POST PROCEDURAL COMPLICATION
     Dosage: SUBCUTANEOUS
     Route: 058
  2. VOLTARENE (DICLOFENAC SODIUM) (50  MILLIGRAM) [Concomitant]
  3. INEXIUM (ESOMEPRAZOLE MAGNESIUM) (20 MILLIGRAM) [Concomitant]
  4. DOLIPRANE (PARACETAMOL) (1000 MILLIGRAM) [Concomitant]

REACTIONS (2)
  - DEEP VEIN THROMBOSIS [None]
  - DRUG INEFFECTIVE [None]
